FAERS Safety Report 4998810-5 (Version None)
Quarter: 2006Q2

REPORT INFORMATION
  Report Type: 
  Country: None (occurrence: None)
  Receive Date: 20060510
  Receipt Date: 20060503
  Transmission Date: 20061013
  Serious: Yes (Hospitalization)
  Sender: FDA-Public Use
  Company Number: FR-MERCK-0605FRA00007

PATIENT
  Age: 72 Year
  Sex: Male
  Weight: 86 kg

DRUGS (7)
  1. EMEND [Suspect]
     Indication: PROPHYLAXIS OF NAUSEA AND VOMITING
     Route: 048
     Dates: start: 20060202, end: 20060202
  2. DEXAMETHASONE [Suspect]
     Indication: PROPHYLAXIS OF NAUSEA AND VOMITING
     Route: 051
     Dates: start: 20060202, end: 20060202
  3. DEXCHLORPHENIRAMINE MALEATE [Concomitant]
     Route: 051
     Dates: start: 20060202, end: 20060202
  4. IRINOTECAN HYDROCHLORIDE [Concomitant]
     Indication: COLON CANCER
     Route: 042
     Dates: start: 20060202, end: 20060202
  5. ERBITUX [Concomitant]
     Indication: COLON CANCER
     Route: 042
     Dates: start: 20060202, end: 20060202
  6. ATROPINE [Concomitant]
     Route: 058
     Dates: start: 20060202, end: 20060202
  7. ONDANSETRON HYDROCHLORIDE [Concomitant]
     Indication: PROPHYLAXIS OF NAUSEA AND VOMITING
     Route: 051
     Dates: start: 20060202, end: 20060202

REACTIONS (3)
  - DIZZINESS [None]
  - EXTRASYSTOLES [None]
  - PALPITATIONS [None]
